FAERS Safety Report 6021893-0 (Version None)
Quarter: 2008Q4

REPORT INFORMATION
  Report Type: 
  Country: None (occurrence: None)
  Receive Date: 20081229
  Receipt Date: 20081219
  Transmission Date: 20090506
  Serious: Yes (Life-Threatening, Hospitalization)
  Sender: FDA-Public Use
  Company Number: DE-AMGEN-US325077

PATIENT
  Age: 42 Year
  Sex: Male

DRUGS (2)
  1. ENBREL [Suspect]
     Indication: PSORIASIS
     Dosage: UNKNOWN
     Route: 058
     Dates: start: 20060101, end: 20080101
  2. HUMIRA [Suspect]
     Indication: PSORIASIS
     Dosage: ONE DOSE EVERY SECOND WEEK
     Route: 058
     Dates: start: 20080501, end: 20080901

REACTIONS (4)
  - ASCITES [None]
  - PERICARDIAL EFFUSION [None]
  - T-CELL LYMPHOMA [None]
  - TUBERCULOSIS [None]
